FAERS Safety Report 6682337-9 (Version None)
Quarter: 2010Q2

REPORT INFORMATION
  Report Type: 
  Country: None (occurrence: None)
  Receive Date: 20100415
  Receipt Date: 20100405
  Transmission Date: 20101027
  Serious: Yes (Hospitalization)
  Sender: FDA-Public Use
  Company Number: JP-PFIZER INC-2010044322

PATIENT
  Age: 48 Year
  Sex: Female

DRUGS (4)
  1. ZITHROMAC SR [Suspect]
     Indication: BRONCHITIS
     Dosage: 2 G, 1X/DAY
     Route: 048
     Dates: start: 20091102, end: 20091102
  2. MONTELUKAST SODIUM [Concomitant]
     Route: 048
     Dates: start: 20091102, end: 20091109
  3. LYSOZYME HYDROCHLORIDE [Concomitant]
     Dates: start: 20091102, end: 20091109
  4. MUCOSOLVAN [Concomitant]
     Dates: start: 20091102, end: 20091109

REACTIONS (2)
  - ABDOMINAL PAIN [None]
  - MELAENA [None]
